FAERS Safety Report 10922680 (Version 1)
Quarter: 2015Q1

REPORT INFORMATION
  Report Type: Spontaneous
  Country: US (occurrence: None)
  Receive Date: 20150313
  Receipt Date: 20150313
  Transmission Date: 20150721
  Serious: Yes (Disabling)
  Sender: FDA-Public Use
  Company Number: 2015SUP00023

PATIENT
  Age: 42 Year
  Sex: Female

DRUGS (2)
  1. TRAZODONE [Suspect]
     Active Substance: TRAZODONE HYDROCHLORIDE
  2. TOPIRAMATE (TOPIRAMATE) UNKNOWN [Suspect]
     Active Substance: TOPIRAMATE
     Indication: MIGRAINE WITH AURA

REACTIONS (2)
  - Visual perseveration [None]
  - Potentiating drug interaction [None]
